FAERS Safety Report 5442332-4 (Version None)
Quarter: 2007Q3

REPORT INFORMATION
  Report Type: 
  Country: None (occurrence: None)
  Receive Date: 20070904
  Receipt Date: 20070823
  Transmission Date: 20080115
  Serious: Yes (Other)
  Sender: FDA-Public Use
  Company Number: DE-PFIZER INC-2007070141

PATIENT
  Age: 35 Year
  Sex: Male

DRUGS (2)
  1. TAFIL [Suspect]
     Route: 048
  2. ALCOHOL [Suspect]

REACTIONS (1)
  - SUBSTANCE ABUSE [None]
